FAERS Safety Report 6380697-X (Version None)
Quarter: 2009Q3

REPORT INFORMATION
  Report Type: 
  Country: None (occurrence: None)
  Receive Date: 20090929
  Receipt Date: 20090924
  Transmission Date: 20100115
  Serious: Yes (Other)
  Sender: FDA-Public Use
  Company Number: US-KINGPHARMUSA00001-K200901030

PATIENT

DRUGS (5)
  1. SKELAXIN [Suspect]
     Indication: MUSCLE SPASMS
     Dosage: 800 MG, SINGLE
     Dates: start: 20090814, end: 20090814
  2. SKELAXIN [Suspect]
     Indication: PAIN
  3. SKELAXIN [Suspect]
  4. NORCO [Concomitant]
     Dosage: 7.5 MG, QID
  5. AMBIEN [Concomitant]
     Dosage: UNK

REACTIONS (3)
  - HYPERSENSITIVITY [None]
  - NAUSEA [None]
  - SYNCOPE [None]
